FAERS Safety Report 16912126 (Version 7)
Quarter: 2020Q3

REPORT INFORMATION
  Report Type: Report from Study
  Country: US (occurrence: US)
  Receive Date: 20191014
  Receipt Date: 20200707
  Transmission Date: 20201102
  Serious: Yes (Hospitalization, Other)
  Sender: FDA-Public Use
  Company Number: US-BIOGEN-2019BI00795062

PATIENT
  Age: 68 Year
  Sex: Female
  Weight: 55.39 kg

DRUGS (17)
  1. TYSABRI [Suspect]
     Active Substance: NATALIZUMAB
     Dosage: INFUSED OVER 1 HOUR
     Route: 042
     Dates: start: 20180919, end: 20200616
  2. ASPIRIN. [Concomitant]
     Active Substance: ASPIRIN
     Indication: PRODUCT USED FOR UNKNOWN INDICATION
     Route: 048
     Dates: start: 20180830
  3. MAGNESIUM [Concomitant]
     Active Substance: MAGNESIUM
     Indication: PRODUCT USED FOR UNKNOWN INDICATION
     Route: 065
     Dates: start: 20190612
  4. TROSPIUM [Concomitant]
     Active Substance: TROSPIUM
     Indication: PRODUCT USED FOR UNKNOWN INDICATION
     Route: 048
     Dates: start: 20191003
  5. ROPINOROLE [Concomitant]
     Active Substance: ROPINIROLE
     Indication: PRODUCT USED FOR UNKNOWN INDICATION
     Route: 048
     Dates: start: 20190612
  6. TYSABRI [Suspect]
     Active Substance: NATALIZUMAB
     Indication: MULTIPLE SCLEROSIS
     Dosage: INFUSED OVER 1 HOUR
     Route: 042
     Dates: start: 20180919, end: 20190917
  7. LEVEMIR [Concomitant]
     Active Substance: INSULIN DETEMIR
     Indication: PRODUCT USED FOR UNKNOWN INDICATION
     Dosage: 100 UNIT/ML
     Route: 058
     Dates: start: 20180517
  8. ONDANSETRON [Concomitant]
     Active Substance: ONDANSETRON
     Indication: PRODUCT USED FOR UNKNOWN INDICATION
     Route: 048
     Dates: start: 20180828
  9. CALCIUM/VITAMIN D [Concomitant]
     Active Substance: CALCIUM\VITAMIN D
     Indication: PRODUCT USED FOR UNKNOWN INDICATION
     Route: 065
     Dates: start: 20190227
  10. METFORMIN [Concomitant]
     Active Substance: METFORMIN HYDROCHLORIDE
     Indication: PRODUCT USED FOR UNKNOWN INDICATION
     Route: 048
     Dates: start: 20180818
  11. PLETAL [Concomitant]
     Active Substance: CILOSTAZOL
     Indication: PRODUCT USED FOR UNKNOWN INDICATION
     Route: 048
     Dates: start: 20190612
  12. TYSABRI [Suspect]
     Active Substance: NATALIZUMAB
     Dosage: INFUSED OVER 1 HOUR
     Route: 042
     Dates: start: 20191122
  13. ISOSORBIDE MONONITRATE. [Concomitant]
     Active Substance: ISOSORBIDE MONONITRATE
     Indication: PRODUCT USED FOR UNKNOWN INDICATION
     Route: 048
     Dates: start: 20180702
  14. TYSABRI [Suspect]
     Active Substance: NATALIZUMAB
     Dosage: INFUSED OVER 1 HOUR
     Route: 042
     Dates: start: 20200616
  15. EZETIMIBE/SIMVASTATIN [Concomitant]
     Active Substance: EZETIMIBE\SIMVASTATIN
     Indication: PRODUCT USED FOR UNKNOWN INDICATION
     Dosage: 0.5 TABLET AT BEDTIME
     Route: 048
     Dates: start: 20180822
  16. NEURONTIN [Concomitant]
     Active Substance: GABAPENTIN
     Indication: PRODUCT USED FOR UNKNOWN INDICATION
     Route: 048
     Dates: start: 20190517
  17. LISINOPRIL. [Concomitant]
     Active Substance: LISINOPRIL
     Indication: PRODUCT USED FOR UNKNOWN INDICATION
     Route: 048
     Dates: start: 20180517

REACTIONS (30)
  - Blood creatinine decreased [Unknown]
  - Dyskinesia [Recovered/Resolved]
  - Gait disturbance [Not Recovered/Not Resolved]
  - Fear [Not Recovered/Not Resolved]
  - Memory impairment [Not Recovered/Not Resolved]
  - Hepatic steatosis [Unknown]
  - Blood chloride decreased [Unknown]
  - Emotional distress [Recovered/Resolved]
  - Anxiety [Not Recovered/Not Resolved]
  - Abdominal discomfort [Recovered/Resolved]
  - Urinary tract infection [Unknown]
  - Frustration tolerance decreased [Recovered/Resolved]
  - Diarrhoea [Not Recovered/Not Resolved]
  - Diabetic neuropathy [Unknown]
  - Blood glucose increased [Unknown]
  - Abdominal pain [Not Recovered/Not Resolved]
  - Nausea [Not Recovered/Not Resolved]
  - Pancreatitis [Unknown]
  - Major depression [Unknown]
  - Dehydration [Recovered/Resolved]
  - Large intestine infection [Unknown]
  - Product dose omission issue [Not Recovered/Not Resolved]
  - Weight decreased [Unknown]
  - Pancreatic neoplasm [Not Recovered/Not Resolved]
  - Colitis ischaemic [Recovered/Resolved]
  - Blood sodium decreased [Recovered/Resolved]
  - Gallbladder disorder [Unknown]
  - Mobility decreased [Unknown]
  - Pancreatic cyst [Not Recovered/Not Resolved]
  - Hypertonic bladder [Not Recovered/Not Resolved]

NARRATIVE: CASE EVENT DATE: 201807
